FAERS Safety Report 12464106 (Version 1)
Quarter: 2016Q2

REPORT INFORMATION
  Report Type: Spontaneous
  Country: US (occurrence: US)
  Receive Date: 20160614
  Receipt Date: 20160614
  Transmission Date: 20160815
  Serious: Yes (Other)
  Sender: FDA-Public Use
  Company Number: US-GLAXOSMITHKLINE-US2016GSK077821

PATIENT
  Age: 57 Year
  Sex: Female

DRUGS (2)
  1. CORTISONE [Suspect]
     Active Substance: CORTISONE\HYDROCORTISONE
     Indication: PRODUCT USED FOR UNKNOWN INDICATION
     Dosage: UNK, U
     Route: 042
  2. TANZEUM [Suspect]
     Active Substance: ALBIGLUTIDE
     Indication: GLYCOSYLATED HAEMOGLOBIN INCREASED
     Dosage: 30 MG, WE
     Route: 042
     Dates: start: 201603

REACTIONS (16)
  - Contusion [Unknown]
  - Musculoskeletal pain [Unknown]
  - Device use error [Unknown]
  - Musculoskeletal chest pain [Unknown]
  - Injection site pruritus [Unknown]
  - Foot fracture [Unknown]
  - Back pain [Unknown]
  - Muscle tightness [Unknown]
  - Fall [Unknown]
  - Dislocation of vertebra [Unknown]
  - Off label use [Unknown]
  - Injection site erythema [Unknown]
  - Pain [Unknown]
  - Local swelling [Unknown]
  - Injection site reaction [Unknown]
  - Injection site swelling [Unknown]

NARRATIVE: CASE EVENT DATE: 201603
